FAERS Safety Report 25148480 (Version 1)
Quarter: 2025Q2

REPORT INFORMATION
  Report Type: Spontaneous
  Country: US (occurrence: US)
  Receive Date: 20250402
  Receipt Date: 20250402
  Transmission Date: 20250717
  Serious: Yes (Life-Threatening, Hospitalization, Other)
  Sender: ALKEM
  Company Number: US-ALKEM LABORATORIES LIMITED-US-ALKEM-2025-03248

PATIENT
  Age: 43 Year
  Sex: Female

DRUGS (6)
  1. DULOXETINE HYDROCHLORIDE [Interacting]
     Active Substance: DULOXETINE HYDROCHLORIDE
     Indication: Anxiety
     Route: 065
  2. DULOXETINE HYDROCHLORIDE [Interacting]
     Active Substance: DULOXETINE HYDROCHLORIDE
     Indication: Depression
  3. TRAZODONE [Interacting]
     Active Substance: TRAZODONE HYDROCHLORIDE
     Indication: Insomnia
     Route: 065
  4. ASENAPINE [Interacting]
     Active Substance: ASENAPINE
     Indication: Mood swings
     Route: 065
  5. DIPHENHYDRAMINE [Interacting]
     Active Substance: DIPHENHYDRAMINE
     Indication: Insomnia
     Route: 065
  6. DIPHENHYDRAMINE [Interacting]
     Active Substance: DIPHENHYDRAMINE
     Route: 042

REACTIONS (2)
  - Drug interaction [Unknown]
  - Serotonin syndrome [Recovered/Resolved]
